FAERS Safety Report 9882452 (Version 2)
Quarter: 2014Q1

REPORT INFORMATION
  Report Type: Report from Study
  Country: US (occurrence: US)
  Receive Date: 20140207
  Receipt Date: 20140207
  Transmission Date: 20141002
  Serious: Yes (Hospitalization, Other)
  Sender: FDA-Public Use
  Company Number: US-009507513-1103USA01787

PATIENT
  Age: 57 Year
  Sex: Female
  Weight: 131.54 kg

DRUGS (16)
  1. ZOCOR [Suspect]
     Indication: BLOOD CHOLESTEROL INCREASED
     Dosage: UNK
     Route: 048
     Dates: start: 2010, end: 2010
  2. LYRICA [Suspect]
     Indication: NEUROPATHY PERIPHERAL
     Dosage: 50 MG, QID
     Route: 048
     Dates: start: 2010
  3. PREMARIN [Suspect]
     Indication: HYSTERECTOMY
     Dosage: 0.625 MG, QD
     Route: 048
  4. PROTONIX [Suspect]
     Indication: ABDOMINAL DISCOMFORT
     Dosage: 40 MG, QD
     Route: 048
  5. NEURONTIN [Suspect]
     Indication: NEUROPATHY PERIPHERAL
     Dosage: 600 MG, TID
     Route: 048
     Dates: start: 2010
  6. ASPIRIN [Concomitant]
     Dosage: 1 DF, QD
     Route: 048
  7. OMEGA-3 MARINE TRIGLYCERIDES [Concomitant]
  8. ADVAIR [Concomitant]
  9. CLONIDINE [Concomitant]
     Indication: HYPERTENSION
  10. ATACAND [Concomitant]
  11. XANAX [Concomitant]
  12. PAXIL [Concomitant]
  13. COREG [Concomitant]
  14. COMBIVENT [Concomitant]
  15. LORTAB [Concomitant]
     Indication: PAIN
  16. EFFEXOR [Concomitant]
     Indication: DEPRESSION
     Dosage: 150 MG, QD

REACTIONS (9)
  - Cerebrovascular accident [Recovering/Resolving]
  - Diabetes mellitus [Recovering/Resolving]
  - Neuropathy peripheral [Recovering/Resolving]
  - Coma [Recovering/Resolving]
  - Paralysis [Recovering/Resolving]
  - Renal disorder [Recovering/Resolving]
  - Blood triglycerides increased [Unknown]
  - Blood cholesterol increased [Unknown]
  - Rhabdomyolysis [Recovering/Resolving]
